FAERS Safety Report 6042732-8 (Version None)
Quarter: 2009Q1

REPORT INFORMATION
  Report Type: 
  Country: None (occurrence: None)
  Receive Date: 20090119
  Receipt Date: 20090112
  Transmission Date: 20090719
  Serious: No
  Sender: FDA-Public Use
  Company Number: FR-JNJFOC-20090102058

PATIENT
  Age: 70 Year
  Sex: Male

DRUGS (2)
  1. DURAGESIC-100 [Suspect]
     Dosage: 2 PATCHES: 75 AND 25 ?G IN THE SAME TIME
     Route: 062
  2. DURAGESIC-100 [Suspect]
     Indication: CANCER PAIN
     Route: 062

REACTIONS (2)
  - INAPPROPRIATE SCHEDULE OF DRUG ADMINISTRATION [None]
  - PRODUCT QUALITY ISSUE [None]
